FAERS Safety Report 12993440 (Version 1)
Quarter: 2016Q4

REPORT INFORMATION
  Report Type: Report from Study
  Country: FR (occurrence: FR)
  Receive Date: 20161202
  Receipt Date: 20161202
  Transmission Date: 20170207
  Serious: Yes (Hospitalization, Other)
  Sender: FDA-Public Use
  Company Number: FR-REGENERON PHARMACEUTICALS, INC.-2016-10353

PATIENT

DRUGS (26)
  1. EYLEA [Suspect]
     Active Substance: AFLIBERCEPT
     Indication: NEOVASCULAR AGE-RELATED MACULAR DEGENERATION
     Dosage: 50 ?L, ONCE, LEFT EYE
     Dates: start: 20140130
  2. TENSTATEN [Concomitant]
     Active Substance: CICLETANINE HYDROCHLORIDE
     Indication: HYPERTENSION
     Dosage: 50 MG, UNK
     Dates: start: 1927, end: 20151001
  3. TOBREX [Concomitant]
     Active Substance: TOBRAMYCIN
     Indication: PROPHYLAXIS
     Dosage: UNK
     Dates: start: 20140330
  4. TETRACAIN [Concomitant]
     Indication: LOCAL ANAESTHESIA
     Dosage: UNK
     Dates: start: 20140130
  5. TETRACAIN [Concomitant]
     Dosage: UNK
     Dates: start: 20141204
  6. EYLEA [Suspect]
     Active Substance: AFLIBERCEPT
     Dosage: 50 ?L, LEFT EYE
     Dates: start: 20140410
  7. EYLEA [Suspect]
     Active Substance: AFLIBERCEPT
     Dosage: 50 ?L, LEFT EYE
     Dates: start: 20150730
  8. TETRACAIN [Concomitant]
     Dosage: UNK
     Dates: start: 20160526, end: 20160526
  9. EYLEA [Suspect]
     Active Substance: AFLIBERCEPT
     Dosage: 50 ?L, LEFT EYE
     Dates: start: 20140330
  10. EYLEA [Suspect]
     Active Substance: AFLIBERCEPT
     Dosage: 50 ?L, LEFT EYE
     Dates: start: 20141204
  11. TOBREX [Concomitant]
     Active Substance: TOBRAMYCIN
     Dosage: UNK
     Dates: start: 20140731
  12. TETRACAIN [Concomitant]
     Dosage: UNK
     Dates: start: 20150730
  13. TETRACAIN [Concomitant]
     Dosage: UNK
     Dates: start: 20140410
  14. EYLEA [Suspect]
     Active Substance: AFLIBERCEPT
     Dosage: 50 ?L, LEFT EYE
     Dates: start: 20150416
  15. EYLEA [Suspect]
     Active Substance: AFLIBERCEPT
     Dosage: LEFT EYE, VISIT 15
     Dates: start: 20160526, end: 20160526
  16. TOBREX [Concomitant]
     Active Substance: TOBRAMYCIN
     Dosage: UNK
     Dates: start: 20141204
  17. TETRACAIN [Concomitant]
     Dosage: UNK
     Dates: start: 20150416
  18. TETRACAIN [Concomitant]
     Dosage: UNK
     Dates: start: 20140731
  19. TETRACAIN [Concomitant]
     Dosage: UNK
     Dates: start: 20160128, end: 20160128
  20. EYLEA [Suspect]
     Active Substance: AFLIBERCEPT
     Dosage: LEFT EYE, VISIT 13
     Dates: start: 20160128, end: 20160128
  21. TOBREX [Concomitant]
     Active Substance: TOBRAMYCIN
     Dosage: UNK
     Dates: start: 20140410
  22. EYLEA [Suspect]
     Active Substance: AFLIBERCEPT
     Dosage: 50 ?L, LEFT EYE
     Dates: start: 20140731
  23. TETRACAIN [Concomitant]
     Dosage: UNK
     Dates: start: 20140330
  24. FENOFIBRATE. [Concomitant]
     Active Substance: FENOFIBRATE
     Indication: PRODUCT USED FOR UNKNOWN INDICATION
     Dosage: 67 MG, UNK
     Dates: start: 1927
  25. STRESAM [Concomitant]
     Active Substance: ETIFOXINE
     Indication: PRODUCT USED FOR UNKNOWN INDICATION
     Dosage: 50 MG, UNK
     Dates: start: 2013
  26. DOLIPRANE [Concomitant]
     Active Substance: ACETAMINOPHEN
     Indication: PRODUCT USED FOR UNKNOWN INDICATION
     Dosage: 1000 MG, UNK
     Dates: start: 2013

REACTIONS (2)
  - Cardiac failure [Recovered/Resolved]
  - Hemiplegia [Unknown]

NARRATIVE: CASE EVENT DATE: 20150925
